FAERS Safety Report 6652345-2 (Version None)
Quarter: 2010Q1

REPORT INFORMATION
  Report Type: 
  Country: None (occurrence: None)
  Receive Date: 20100323
  Receipt Date: 20100316
  Transmission Date: 20100710
  Serious: Yes (Other)
  Sender: FDA-Public Use
  Company Number: 2010SP012603

PATIENT
  Age: 24 Year
  Sex: Female
  Weight: 58.9676 kg

DRUGS (2)
  1. DR. SCHOLL'S FOR HER 16 HOUR INSOLES [Suspect]
     Dates: start: 20091217, end: 20091218
  2. ASPIRIN [Concomitant]

REACTIONS (3)
  - DISCOMFORT [None]
  - HYPOAESTHESIA [None]
  - NERVE INJURY [None]
